FAERS Safety Report 6523838-3 (Version None)
Quarter: 2009Q4

REPORT INFORMATION
  Report Type: 
  Country: None (occurrence: None)
  Receive Date: 20091230
  Receipt Date: 20091230
  Transmission Date: 20100525
  Serious: No
  Sender: FDA-Public Use
  Company Number: None

PATIENT
  Age: 77 Year
  Sex: Female
  Weight: 56.6996 kg

DRUGS (1)
  1. TYLENOL ARTHRITIS 650MG [Suspect]
     Indication: ARTHRITIS
     Dosage: 1 CAPLET TWICE A DAY IF NEE
     Dates: start: 20091101, end: 20091228

REACTIONS (2)
  - NAUSEA [None]
  - PRODUCT QUALITY ISSUE [None]
